FAERS Safety Report 20854365 (Version 1)
Quarter: 2022Q2

REPORT INFORMATION
  Report Type: Spontaneous
  Country: US (occurrence: US)
  Receive Date: 20220520
  Receipt Date: 20220520
  Transmission Date: 20220721
  Serious: No
  Sender: FDA-Public Use
  Company Number: US-BRISTOL-MYERS SQUIBB COMPANY-2022-029336

PATIENT
  Age: 74 Year
  Sex: Female

DRUGS (1)
  1. REVLIMID [Suspect]
     Active Substance: LENALIDOMIDE
     Indication: Plasma cell myeloma
     Dosage: DOSE: 10 MILLIGRAM, FREQ: DAILY X 14 DAYS, EVERY 21 DAYS
     Route: 048
     Dates: start: 20220131

REACTIONS (3)
  - Body temperature increased [Recovered/Resolved]
  - Constipation [Not Recovered/Not Resolved]
  - Flushing [Recovered/Resolved]
